FAERS Safety Report 10336141 (Version 1)
Quarter: 2014Q3

REPORT INFORMATION
  Report Type: Spontaneous
  Country: US (occurrence: US)
  Receive Date: 20140723
  Receipt Date: 20140723
  Transmission Date: 20150326
  Serious: No
  Sender: FDA-Public Use
  Company Number: US-BRISTOL-MYERS SQUIBB COMPANY-19828938

PATIENT
  Age: 71 Year
  Sex: Male

DRUGS (2)
  1. SPRYCEL [Suspect]
     Active Substance: DASATINIB
     Indication: CHRONIC MYELOID LEUKAEMIA
     Dates: start: 20130920
  2. WARFARIN [Suspect]
     Active Substance: WARFARIN

REACTIONS (3)
  - Oral pain [Unknown]
  - Sinus disorder [Unknown]
  - Lip pain [Unknown]

NARRATIVE: CASE EVENT DATE: 2013
